FAERS Safety Report 14805596 (Version 2)
Quarter: 2018Q2

REPORT INFORMATION
  Report Type: Spontaneous
  Country: US (occurrence: US)
  Receive Date: 20180425
  Receipt Date: 20180607
  Transmission Date: 20180711
  Serious: Yes (Other)
  Sender: FDA-Public Use
  Company Number: PHEH2018US015694

PATIENT
  Sex: Male

DRUGS (1)
  1. TRIESENCE [Suspect]
     Active Substance: TRIAMCINOLONE ACETONIDE
     Indication: RETINAL VEIN OCCLUSION
     Dosage: 0.1 OT, UNK
     Route: 031
     Dates: start: 20180409

REACTIONS (4)
  - Vision blurred [Recovered/Resolved]
  - Visual impairment [Recovering/Resolving]
  - Vitreous floaters [Recovered/Resolved]
  - Visual impairment [Recovered/Resolved]
